FAERS Safety Report 18966209 (Version 1)
Quarter: 2021Q1

REPORT INFORMATION
  Report Type: Spontaneous
  Country: US (occurrence: US)
  Receive Date: 20210303
  Receipt Date: 20210303
  Transmission Date: 20210420
  Serious: No
  Sender: FDA-Public Use
  Company Number: US-SUNOVION-2021SUN000544

PATIENT
  Age: 42 Year
  Sex: Female

DRUGS (1)
  1. LATUDA [Suspect]
     Active Substance: LURASIDONE HYDROCHLORIDE
     Dosage: 120 MG, QD (THREE 40MG TABLETS A DAY)
     Route: 048

REACTIONS (4)
  - Fear [Unknown]
  - Feeling abnormal [Unknown]
  - Drug ineffective [Unknown]
  - Therapy interrupted [Unknown]
